FAERS Safety Report 22597127 (Version 1)
Quarter: 2023Q2

REPORT INFORMATION
  Report Type: Spontaneous
  Country: IN (occurrence: IN)
  Receive Date: 20230613
  Receipt Date: 20230613
  Transmission Date: 20230722
  Serious: Yes (Death)
  Sender: FDA-Public Use
  Company Number: IN-STRIDES ARCOLAB LIMITED-2023SP009397

PATIENT
  Age: 23 Year
  Sex: Female

DRUGS (1)
  1. PHENOBARBITAL [Suspect]
     Active Substance: PHENOBARBITAL
     Indication: Epilepsy
     Dosage: UNK
     Route: 065

REACTIONS (5)
  - Drug-induced liver injury [Fatal]
  - Mixed liver injury [Fatal]
  - Hypersensitivity [Fatal]
  - Drug reaction with eosinophilia and systemic symptoms [Fatal]
  - Sepsis [Fatal]
